FAERS Safety Report 11936019 (Version 2)
Quarter: 2016Q2

REPORT INFORMATION
  Report Type: Spontaneous
  Country: US (occurrence: US)
  Receive Date: 20160121
  Receipt Date: 20160418
  Transmission Date: 20160815
  Serious: No
  Sender: FDA-Public Use
  Company Number: US-OTSUKA-2015_013940

PATIENT
  Sex: Female

DRUGS (6)
  1. PREMARIN [Concomitant]
     Active Substance: ESTROGENS, CONJUGATED
     Indication: PRODUCT USED FOR UNKNOWN INDICATION
     Dosage: 0.3 MG, UNK
     Route: 065
  2. REXULTI [Suspect]
     Active Substance: BREXPIPRAZOLE
     Dosage: 1 MG, QD
     Route: 065
     Dates: start: 2015
  3. SPIRONOLACTONE. [Concomitant]
     Active Substance: SPIRONOLACTONE
     Indication: ACNE CYSTIC
     Dosage: UNK
     Route: 065
  4. REXULTI [Suspect]
     Active Substance: BREXPIPRAZOLE
     Indication: DEPRESSION
     Dosage: 0.5 MG, QD
     Route: 065
     Dates: start: 201510, end: 2015
  5. LUNESTA [Concomitant]
     Active Substance: ESZOPICLONE
     Indication: INITIAL INSOMNIA
     Dosage: UNK
     Route: 065
  6. XANAX [Concomitant]
     Active Substance: ALPRAZOLAM
     Indication: ANXIETY
     Dosage: UNK
     Route: 065

REACTIONS (4)
  - Confusional state [Not Recovered/Not Resolved]
  - Rash [Not Recovered/Not Resolved]
  - Hyperhidrosis [Not Recovered/Not Resolved]
  - Amnesia [Not Recovered/Not Resolved]

NARRATIVE: CASE EVENT DATE: 2015
